FAERS Safety Report 6946778-4 (Version None)
Quarter: 2010Q3

REPORT INFORMATION
  Report Type: 
  Country: None (occurrence: None)
  Receive Date: 20100825
  Receipt Date: 20100810
  Transmission Date: 20110219
  Serious: Yes (Hospitalization)
  Sender: FDA-Public Use
  Company Number: AE 2010-172

PATIENT
  Age: 48 Year
  Sex: Male

DRUGS (4)
  1. PRIALT [Suspect]
     Indication: PAIN
     Dosage: 0.042 UG/HR -0.083 UG/HR
     Dates: start: 20100425
  2. MST [Concomitant]
  3. ARCOXIA [Concomitant]
  4. SPASMEX [Concomitant]

REACTIONS (5)
  - ALANINE AMINOTRANSFERASE INCREASED [None]
  - ASPARTATE AMINOTRANSFERASE INCREASED [None]
  - GAMMA-GLUTAMYLTRANSFERASE INCREASED [None]
  - RESTLESS LEGS SYNDROME [None]
  - SENSORY DISTURBANCE [None]
